FAERS Safety Report 9665704 (Version 1)
Quarter: 2013Q4

REPORT INFORMATION
  Report Type: Spontaneous
  Country: KR (occurrence: KR)
  Receive Date: 20131104
  Receipt Date: 20131104
  Transmission Date: 20140711
  Serious: Yes (Death, Other)
  Sender: FDA-Public Use
  Company Number: PHHY2013KR123291

PATIENT
  Age: 62 Year
  Sex: Female

DRUGS (3)
  1. CICLOSPORIN [Suspect]
     Indication: PROPHYLAXIS AGAINST GRAFT VERSUS HOST DISEASE
     Dosage: 3 MG/KG, QD
     Route: 042
  2. METHOTREXATE [Suspect]
     Indication: PROPHYLAXIS AGAINST GRAFT VERSUS HOST DISEASE
     Dosage: 15 MG/M2, ON DAY 1 AND 10 MG/M2 ON DAYS 3, 6, AND 11
     Route: 042
  3. MYCOPHENOLATE MOFETIL [Suspect]

REACTIONS (12)
  - Pneumonia aspiration [Fatal]
  - Encephalitis [Unknown]
  - Amnesia [Unknown]
  - Disorientation [Recovered/Resolved]
  - Dysarthria [Recovered/Resolved]
  - Lacunar infarction [Recovered/Resolved]
  - Neurological symptom [Recovered/Resolved]
  - White matter lesion [Recovered/Resolved]
  - Mental disorder [Recovered/Resolved]
  - Stupor [Recovered/Resolved]
  - Cerebral disorder [Unknown]
  - BK virus infection [Unknown]
